FAERS Safety Report 23703198 (Version 1)
Quarter: 2024Q2

REPORT INFORMATION
  Report Type: Spontaneous
  Country: IT (occurrence: IT)
  Receive Date: 20240403
  Receipt Date: 20240403
  Transmission Date: 20240715
  Serious: Yes (Other)
  Sender: FDA-Public Use
  Company Number: None

PATIENT
  Age: 76 Year
  Sex: Male

DRUGS (14)
  1. EYLEA [Suspect]
     Active Substance: AFLIBERCEPT
     Indication: Age-related macular degeneration
     Dosage: 1 DF, ONCE, 3RD INTRAVITREAL, SOL FOR INJ, 40 MG/ML
     Route: 031
     Dates: start: 20200917, end: 20200917
  2. EYLEA [Suspect]
     Active Substance: AFLIBERCEPT
     Dosage: 1 DF, ONCE, 4TH INTRAVITREAL, SOL FOR INJ, 40 MG/ML
     Route: 031
     Dates: start: 20201029, end: 20201029
  3. LUCENTIS [Suspect]
     Active Substance: RANIBIZUMAB
     Indication: Age-related macular degeneration
     Dosage: 1 DF, ONCE, 1ST INTRAVITREAL
     Route: 031
     Dates: start: 20200604, end: 20200604
  4. LUCENTIS [Suspect]
     Active Substance: RANIBIZUMAB
     Dosage: 1 DF, ONCE, 2ND INTRAVITREAL
     Route: 031
     Dates: start: 20200727, end: 20200727
  5. LUCENTIS [Suspect]
     Active Substance: RANIBIZUMAB
     Dosage: 1 DF, ONCE, 5TH INTRAVITREAL
     Route: 031
     Dates: start: 20210211, end: 20210211
  6. LUCENTIS [Suspect]
     Active Substance: RANIBIZUMAB
     Dosage: 1 DF, ONCE, 6TH INTRAVITREAL
     Route: 031
     Dates: start: 20210422, end: 20210422
  7. BEOVU [Suspect]
     Active Substance: BROLUCIZUMAB-DBLL
     Indication: Age-related macular degeneration
     Dosage: 1 DF, ONCE,  7TH INTRAVITREAL
     Route: 031
     Dates: start: 20220210, end: 20220210
  8. BEOVU [Suspect]
     Active Substance: BROLUCIZUMAB-DBLL
     Dosage: 1 DF, ONCE, 8TH INTRAVITREAL
     Route: 031
     Dates: start: 20220616, end: 20220616
  9. BEOVU [Suspect]
     Active Substance: BROLUCIZUMAB-DBLL
     Dosage: 1 DF, ONCE, 9TH INTRAVITREAL
     Route: 031
     Dates: start: 20220624, end: 20220624
  10. BEOVU [Suspect]
     Active Substance: BROLUCIZUMAB-DBLL
     Dosage: 1 DF, ONCE, 10TH INTRAVITREAL
     Route: 031
     Dates: start: 20221007, end: 20221007
  11. BEOVU [Suspect]
     Active Substance: BROLUCIZUMAB-DBLL
     Dosage: 1 DF, ONCE, 11TH INTRAVITREAL
     Route: 031
     Dates: start: 20221201, end: 20221201
  12. BEOVU [Suspect]
     Active Substance: BROLUCIZUMAB-DBLL
     Dosage: 1 DF, ONCE, 12TH INTRAVITREAL
     Route: 031
     Dates: start: 20230406, end: 20230406
  13. BEOVU [Suspect]
     Active Substance: BROLUCIZUMAB-DBLL
     Dosage: 1 DF, ONCE, 13TH INTRAVITREAL
     Route: 031
     Dates: start: 20230727, end: 20230727
  14. NIFEDIPINE [Concomitant]
     Active Substance: NIFEDIPINE
     Indication: Hypertension
     Dosage: 1 DF, QD
     Route: 048

REACTIONS (3)
  - Retinal oedema [Not Recovered/Not Resolved]
  - Subretinal fluid [Not Recovered/Not Resolved]
  - Therapeutic product effect decreased [Not Recovered/Not Resolved]

NARRATIVE: CASE EVENT DATE: 20231206
